FAERS Safety Report 5416999-0 (Version None)
Quarter: 2007Q3

REPORT INFORMATION
  Report Type: 
  Country: None (occurrence: None)
  Receive Date: 20070816
  Receipt Date: 20070807
  Transmission Date: 20080115
  Serious: Yes (Hospitalization)
  Sender: FDA-Public Use
  Company Number: IT-ASTRAZENECA-2007SE04178

PATIENT
  Age: 76 Year
  Sex: Male

DRUGS (4)
  1. PROVISACOR [Suspect]
     Indication: MYOCARDIAL ISCHAEMIA
     Route: 048
     Dates: start: 20040601, end: 20070602
  2. ASPIRIN [Concomitant]
     Dates: start: 20040601
  3. METOPROLOLO TRATRATO [Concomitant]
     Dates: start: 20040601
  4. COSOPT [Concomitant]
     Dates: start: 20060601

REACTIONS (2)
  - HEPATITIS CHOLESTATIC [None]
  - PLATELET COUNT DECREASED [None]
